FAERS Safety Report 4960138-7 (Version None)
Quarter: 2006Q1

REPORT INFORMATION
  Report Type: 
  Country: None (occurrence: None)
  Receive Date: 20060328
  Receipt Date: 20060314
  Transmission Date: 20060701
  Serious: Yes (Other)
  Sender: FDA-Public Use
  Company Number: 2005055975

PATIENT
  Age: 43 Year
  Sex: Female
  Weight: 47.1741 kg

DRUGS (5)
  1. SUTENT [Suspect]
     Indication: BREAST CANCER METASTATIC
     Dosage: 50 MG (50 MG, CYCLIC), ORAL
     Route: 048
     Dates: start: 20041015
  2. ATENOLOL [Concomitant]
  3. HYDROCHLOROTHIAZIDE [Concomitant]
  4. POTASSIUM (POTASSIUM) [Concomitant]
  5. DECADRON [Concomitant]

REACTIONS (6)
  - BONE GRAFT [None]
  - ENDODONTIC PROCEDURE [None]
  - IMPAIRED HEALING [None]
  - POST PROCEDURAL FISTULA [None]
  - POSTOPERATIVE ABSCESS [None]
  - TOOTH ABSCESS [None]
